FAERS Safety Report 8854348 (Version 1)
Quarter: 2012Q4

REPORT INFORMATION
  Report Type: Spontaneous
  Country: US (occurrence: None)
  Receive Date: 20121019
  Receipt Date: 20121019
  Transmission Date: 20130627
  Serious: No
  Sender: FDA-Public Use
  Company Number: None

PATIENT
  Age: 53 Year

DRUGS (1)
  1. RECLAST [Suspect]

REACTIONS (10)
  - Scar [None]
  - Musculoskeletal stiffness [None]
  - Musculoskeletal pain [None]
  - Osteoarthritis [None]
  - Plantar fasciitis [None]
  - Weight increased [None]
  - Toothache [None]
  - Fatigue [None]
  - Depression [None]
  - Herpes zoster oticus [None]
